FAERS Safety Report 16831178 (Version 4)
Quarter: 2020Q1

REPORT INFORMATION
  Report Type: Report from Study
  Country: None (occurrence: US)
  Receive Date: 20190920
  Receipt Date: 20200106
  Transmission Date: 20200409
  Serious: Yes (Hospitalization)
  Sender: FDA-Public Use
  Company Number: US-ABBVIE-19K-163-2929240-00

PATIENT
  Age: 68 Year
  Sex: Female
  Weight: 86.26 kg

DRUGS (8)
  1. PANTOPRAZOLE [Concomitant]
     Active Substance: PANTOPRAZOLE
     Indication: GASTRITIS
  2. IBUPROFEN. [Concomitant]
     Active Substance: IBUPROFEN
     Indication: ARTHRALGIA
  3. HUMIRA [Suspect]
     Active Substance: ADALIMUMAB
     Indication: PSORIATIC ARTHROPATHY
     Route: 058
     Dates: end: 20190826
  4. PRAVASTATIN. [Concomitant]
     Active Substance: PRAVASTATIN
     Indication: BLOOD CHOLESTEROL INCREASED
  5. LISINOPRIL. [Concomitant]
     Active Substance: LISINOPRIL
     Indication: HYPERTENSION
  6. ASPRIN [Concomitant]
     Active Substance: ASPIRIN
     Indication: CARDIAC DISORDER
  7. HUMIRA [Suspect]
     Active Substance: ADALIMUMAB
     Indication: PSORIASIS
     Route: 058
     Dates: start: 2019, end: 20190910
  8. HUMIRA [Suspect]
     Active Substance: ADALIMUMAB
     Route: 058
     Dates: start: 20190924

REACTIONS (15)
  - Dehydration [Unknown]
  - Nausea [Unknown]
  - Joint swelling [Recovered/Resolved]
  - Hiatus hernia [Recovering/Resolving]
  - Gastric ulcer [Recovering/Resolving]
  - Urinary tract infection [Recovered/Resolved]
  - Arthritis bacterial [Recovered/Resolved]
  - Arthritis infective [Unknown]
  - Anaemia [Recovered/Resolved]
  - Hypotension [Not Recovered/Not Resolved]
  - Pain in extremity [Recovered/Resolved]
  - Gastrointestinal haemorrhage [Recovered/Resolved]
  - Constipation [Unknown]
  - Arthralgia [Recovered/Resolved]
  - Hypertension [Unknown]

NARRATIVE: CASE EVENT DATE: 2019
